FAERS Safety Report 8094992-X (Version None)
Quarter: 2012Q1

REPORT INFORMATION
  Report Type: 
  Country: None (occurrence: None)
  Receive Date: 20120131
  Receipt Date: 20120121
  Transmission Date: 20120608
  Serious: Yes (Life-Threatening)
  Sender: FDA-Public Use
  Company Number: JP-UCBSA-050218

PATIENT
  Age: 85 Year
  Sex: Male

DRUGS (11)
  1. HYALEIN [Suspect]
     Indication: LACRIMATION DECREASED
     Dosage: SUFFICIENT QUANTITY (QS), AS NEEDED
     Route: 047
     Dates: start: 20110719
  2. ALLOPURINOL [Suspect]
     Dosage: DAILY DOSE:100 MG
     Route: 048
  3. METHOTREXATE [Suspect]
     Indication: RHEUMATOID ARTHRITIS
     Dosage: 4 MG - 2 MG (1 WEEK)
     Route: 048
     Dates: start: 20110829
  4. ALLOPURINOL [Suspect]
     Indication: HYPERURICAEMIA
     Dosage: DAILY DOSE:50 MG
     Route: 048
  5. CERTOLIZUMAB PEGOL [Suspect]
     Route: 058
  6. DIQUAS [Suspect]
     Indication: LACRIMATION DECREASED
     Dosage: SUFFICIENT QUANTITY (QS), AS NEEDED
     Route: 047
     Dates: start: 20110719
  7. CERTOLIZUMAB PEGOL [Suspect]
     Route: 058
  8. MUCOSTA TABLETS [Suspect]
     Indication: PROPHYLAXIS
     Dosage: DAILY DOSE:100 MG
     Route: 048
     Dates: start: 20110826
  9. HYALEIN [Suspect]
     Indication: PUNCTATE KERATITIS
     Dosage: SUFFICIENT QUANTITY (QS), AS NEEDED
     Route: 047
     Dates: start: 20110719
  10. CERTOLIZUMAB PEGOL [Suspect]
     Indication: RHEUMATOID ARTHRITIS
     Route: 058
     Dates: start: 20091219
  11. DIQUAS [Suspect]
     Indication: PUNCTATE KERATITIS
     Dosage: SUFFICIENT QUANTITY (QS), AS NEEDED
     Route: 047
     Dates: start: 20110719

REACTIONS (1)
  - GASTRIC CANCER [None]
